FAERS Safety Report 25871555 (Version 1)
Quarter: 2025Q4

REPORT INFORMATION
  Report Type: Spontaneous
  Country: US (occurrence: US)
  Receive Date: 20251001
  Receipt Date: 20251001
  Transmission Date: 20260117
  Serious: No
  Sender: GALPHARM INTERNATIONAL
  Company Number: US-PERRIGO-24US009118

PATIENT
  Age: 70 Year
  Sex: Female
  Weight: 74.83 kg

DRUGS (2)
  1. LORATADINE [Suspect]
     Active Substance: LORATADINE
     Indication: Perennial allergy
     Dosage: 5 MG, QHS
     Route: 048
     Dates: start: 20240914, end: 20240915
  2. METOPROLOL [Concomitant]
     Active Substance: METOPROLOL
     Indication: Hypertension
     Dosage: UNK
     Route: 065

REACTIONS (4)
  - Abdominal distension [Recovered/Resolved]
  - Anal incontinence [Recovered/Resolved]
  - Muscle spasms [Recovered/Resolved]
  - Underdose [Unknown]

NARRATIVE: CASE EVENT DATE: 20240914
